FAERS Safety Report 25991092 (Version 1)
Quarter: 2025Q4

REPORT INFORMATION
  Report Type: Spontaneous
  Country: CN (occurrence: CN)
  Receive Date: 20251103
  Receipt Date: 20251103
  Transmission Date: 20260118
  Serious: Yes (Hospitalization)
  Sender: EISAI
  Company Number: CN-Eisai-EC-2025-199152

PATIENT
  Age: 63 Year
  Sex: Male
  Weight: 71 kg

DRUGS (2)
  1. LENVATINIB [Suspect]
     Active Substance: LENVATINIB
     Indication: Hepatic cancer
     Route: 048
     Dates: start: 20250912, end: 20251016
  2. IPAROMLIMAB\TUVONRALIMAB [Suspect]
     Active Substance: IPAROMLIMAB\TUVONRALIMAB
     Indication: Hepatic cancer
     Dosage: FREQUENCY UNKNOWN
     Route: 041

REACTIONS (1)
  - White blood cell count decreased [Recovered/Resolved]

NARRATIVE: CASE EVENT DATE: 20251019
